FAERS Safety Report 10511813 (Version 1)
Quarter: 2014Q3

REPORT INFORMATION
  Report Type: Spontaneous
  Country: US (occurrence: None)
  Receive Date: 20140926
  Receipt Date: 20140926
  Transmission Date: 20150326
  Serious: No
  Sender: FDA-Public Use
  Company Number: 1000068418

PATIENT
  Age: 67 Year
  Sex: Male

DRUGS (6)
  1. SENNA-S (DOCUSATE SODIUM SENNOSIDES) (DOCUSATE SODIUM, SENNOSIDES) [Concomitant]
  2. LINZESS [Suspect]
     Active Substance: LINACLOTIDE
     Indication: CONSTIPATION
     Dosage: 1 IN 1 D
     Route: 048
     Dates: start: 20140613
  3. XANAX [Concomitant]
     Active Substance: ALPRAZOLAM
  4. AMITRIPTYLINE [Concomitant]
     Active Substance: AMITRIPTYLINE
  5. TYLENOL (ACETAMINOPHEN) (ACETAMINOPHEN) [Concomitant]
  6. OXYCODONE [Concomitant]
     Active Substance: OXYCODONE

REACTIONS (1)
  - Accidental overdose [None]

NARRATIVE: CASE EVENT DATE: 20140622
